FAERS Safety Report 16106458 (Version 2)
Quarter: 2019Q1

REPORT INFORMATION
  Report Type: Report from Study
  Country: US (occurrence: US)
  Receive Date: 20190322
  Receipt Date: 20190329
  Transmission Date: 20190418
  Serious: Yes (Hospitalization)
  Sender: FDA-Public Use
  Company Number: US-ACTELION-A-US2019-187889

PATIENT
  Age: 79 Year
  Sex: Female

DRUGS (11)
  1. ISOSORBIDE. [Concomitant]
     Active Substance: ISOSORBIDE
     Dosage: 30 MG, BID
  2. ROSUVASTATIN. [Concomitant]
     Active Substance: ROSUVASTATIN
     Dosage: 10 MG, QD
  3. HYDRALAZINE [Concomitant]
     Active Substance: HYDRALAZINE HYDROCHLORIDE
     Dosage: 25 MG, BID
  4. FUROSEMIDE. [Concomitant]
     Active Substance: FUROSEMIDE
     Dosage: 20 MG, QD
  5. GLIPIZIDE. [Concomitant]
     Active Substance: GLIPIZIDE
     Dosage: 10 MG, QD
  6. LOSARTAN. [Concomitant]
     Active Substance: LOSARTAN
     Dosage: 100 MG, QD
  7. AMIODARONE [Concomitant]
     Active Substance: AMIODARONE
     Dosage: 200 MG, QD
  8. OPSUMIT [Suspect]
     Active Substance: MACITENTAN
     Dosage: 10 MG
     Route: 048
  9. CARVEDILOL. [Concomitant]
     Active Substance: CARVEDILOL
     Dosage: 6.25 MG, BID
  10. OPSUMIT [Suspect]
     Active Substance: MACITENTAN
     Indication: PARAGONIMIASIS
     Dosage: 150 MG, QD
     Route: 048
     Dates: start: 201901
  11. PANTOPRAZOLE [Concomitant]
     Active Substance: PANTOPRAZOLE
     Dosage: 40 MG, QD

REACTIONS (7)
  - Fatigue [Unknown]
  - Oxygen saturation decreased [Not Recovered/Not Resolved]
  - Pericardial effusion [Not Recovered/Not Resolved]
  - Insomnia [Not Recovered/Not Resolved]
  - Fluid retention [Not Recovered/Not Resolved]
  - Decreased appetite [Not Recovered/Not Resolved]
  - Product dose omission [Not Recovered/Not Resolved]

NARRATIVE: CASE EVENT DATE: 20190307
